FAERS Safety Report 4399020-5 (Version None)
Quarter: 2004Q3

REPORT INFORMATION
  Report Type: 
  Country: None (occurrence: None)
  Receive Date: 20040712
  Receipt Date: 20040617
  Transmission Date: 20050211
  Serious: Yes (Death)
  Sender: FDA-Public Use
  Company Number: A03200401943

PATIENT
  Age: 73 Year
  Sex: Male

DRUGS (1)
  1. ELOXATIN [Suspect]
     Indication: HEPATIC NEOPLASM MALIGNANT
     Dosage: 90 MG/M2 OTHER - INTRA-ARTERIAL
     Route: 013
     Dates: start: 20040519, end: 20040519

REACTIONS (6)
  - EMBOLISM [None]
  - GASTROINTESTINAL NECROSIS [None]
  - INTESTINAL ISCHAEMIA [None]
  - POST PROCEDURAL COMPLICATION [None]
  - RENAL ARTERIOSCLEROSIS [None]
  - RENAL FAILURE ACUTE [None]
